FAERS Safety Report 5286005-X (Version None)
Quarter: 2007Q2

REPORT INFORMATION
  Report Type: 
  Country: None (occurrence: None)
  Receive Date: 20070404
  Receipt Date: 20070326
  Transmission Date: 20071010
  Serious: Yes (Other)
  Sender: FDA-Public Use
  Company Number: PHBS2006BR13163

PATIENT
  Age: 36 Year
  Sex: Female

DRUGS (3)
  1. ZELMAC [Suspect]
     Indication: CONSTIPATION
     Dosage: 12 MG/DAY
     Route: 048
  2. LISADOR [Concomitant]
  3. LUFTAL [Concomitant]

REACTIONS (6)
  - FALLOPIAN TUBE OPERATION [None]
  - HAEMORRHAGE [None]
  - LAPAROSCOPY [None]
  - OOPHORECTOMY [None]
  - SURGERY [None]
  - UTERINE OPERATION [None]
